FAERS Safety Report 22327770 (Version 1)
Quarter: 2023Q2

REPORT INFORMATION
  Report Type: Spontaneous
  Country: US (occurrence: US)
  Receive Date: 20230516
  Receipt Date: 20230516
  Transmission Date: 20230722
  Serious: No
  Sender: FDA-Public Use
  Company Number: US-RADIUS HEALTH INC.-2023US001536

PATIENT
  Sex: Female

DRUGS (1)
  1. TYMLOS [Suspect]
     Active Substance: ABALOPARATIDE
     Indication: Product used for unknown indication
     Dosage: 80 MCG, QD
     Route: 058

REACTIONS (7)
  - Toothache [Unknown]
  - Helicobacter infection [Unknown]
  - Nausea [Unknown]
  - Pain in extremity [Recovering/Resolving]
  - Headache [Unknown]
  - Pain [Unknown]
  - Product administered at inappropriate site [Unknown]
